FAERS Safety Report 4470312-4 (Version None)
Quarter: 2004Q3

REPORT INFORMATION
  Report Type: 
  Country: None (occurrence: None)
  Receive Date: 20040910
  Receipt Date: 20040618
  Transmission Date: 20050211
  Serious: No
  Sender: FDA-Public Use
  Company Number: 2004-00099

PATIENT
  Age: 78 Year
  Sex: Female
  Weight: 66.2 kg

DRUGS (1)
  1. VELCADE [Suspect]
     Indication: MULTIPLE MYELOMA
     Dosage: 1.70 MG, IV BOLUS
     Route: 042
     Dates: start: 20040413

REACTIONS (1)
  - CHILLS [None]
